FAERS Safety Report 8519820 (Version 2)
Quarter: 2012Q4

REPORT INFORMATION
  Report Type: 
  Country: US (occurrence: US)
  Receive Date: 20120418
  Receipt Date: 20121204
  Transmission Date: 20130627
  Serious: No
  Sender: FDA-Public Use
  Company Number: US-ASTRAZENECA-2012SE01805

PATIENT
  Age: 66 Year
  Sex: Female
  Weight: 67.6 kg

DRUGS (8)
  1. NEXIUM [Suspect]
     Indication: DYSPEPSIA
     Route: 048
     Dates: start: 201105
  2. NEXIUM [Suspect]
     Indication: GASTROOESOPHAGEAL REFLUX DISEASE
     Route: 048
     Dates: start: 201105
  3. NEXIUM [Suspect]
     Indication: HYPERCHLORHYDRIA
     Route: 048
     Dates: start: 201105
  4. NEXIUM [Suspect]
     Indication: ULCER
     Route: 048
     Dates: start: 201105
  5. VIMOVO [Suspect]
     Indication: PAIN
     Dosage: 500/20 MG TWO TIMES A DAY
     Route: 048
     Dates: start: 201011, end: 201105
  6. OTHER MEDICATIONS [Concomitant]
  7. HYDROCODONE [Concomitant]
     Indication: PAIN
     Dosage: 7.5/500 MG TID
     Route: 048
  8. LORAZEPAM [Concomitant]
     Indication: SLEEP DISORDER
     Route: 048

REACTIONS (16)
  - Drug tolerance decreased [Unknown]
  - Pain [Unknown]
  - Oedema peripheral [Unknown]
  - Joint swelling [Unknown]
  - Hypoaesthesia [Unknown]
  - Drug hypersensitivity [Unknown]
  - Abdominal pain upper [Unknown]
  - Oedema peripheral [Unknown]
  - Erythema [Unknown]
  - Rash [Recovered/Resolved]
  - Oedema peripheral [Unknown]
  - Pruritus [Recovered/Resolved]
  - Nausea [Unknown]
  - Vomiting [Unknown]
  - Drug dose omission [Unknown]
  - Drug ineffective [Unknown]
